FAERS Safety Report 9278498 (Version 1)
Quarter: 2013Q2

REPORT INFORMATION
  Report Type: Spontaneous
  Country: KR (occurrence: KR)
  Receive Date: 20130508
  Receipt Date: 20130508
  Transmission Date: 20140414
  Serious: Yes (Hospitalization)
  Sender: FDA-Public Use
  Company Number: KR-JNJFOC-20130414301

PATIENT
  Age: 36 Month
  Sex: Male

DRUGS (3)
  1. CHILDREN^S TYLENOL [Suspect]
     Indication: PYREXIA
     Route: 048
     Dates: start: 2011, end: 2013
  2. UNKNOWN MEDICATION [Suspect]
     Indication: HYPOTHERMIA
     Route: 065
  3. UNKNOWN MEDICATION [Suspect]
     Indication: HYPOTHERMIA
     Route: 065

REACTIONS (5)
  - Hepatic enzyme increased [Recovered/Resolved]
  - Hypothermia [Unknown]
  - Drug ineffective [Unknown]
  - Product quality issue [Unknown]
  - Pneumonia [None]
